FAERS Safety Report 8521692-1 (Version None)
Quarter: 2012Q3

REPORT INFORMATION
  Report Type: 
  Country: None (occurrence: None)
  Receive Date: 20120719
  Receipt Date: 20120713
  Transmission Date: 20120928
  Serious: Yes (Hospitalization, Other)
  Sender: FDA-Public Use
  Company Number: US-ALEXION PHARMACEUTICALS INC.-A201201253

PATIENT
  Sex: Male
  Weight: 16.4 kg

DRUGS (16)
  1. SOLIRIS [Suspect]
     Indication: HAEMOLYTIC URAEMIC SYNDROME
     Dosage: 300 MG, QW
     Route: 042
     Dates: start: 20120401
  2. CALCIUM CARBONATE [Concomitant]
     Indication: SUPPLEMENTATION THERAPY
     Dosage: 500 MG, BID
     Route: 048
  3. TYLENOL [Concomitant]
     Indication: PAIN
     Dosage: 224 MG (7ML), Q 4-6 HRS PRN
     Route: 048
  4. ZANTAC [Concomitant]
     Indication: PROPHYLAXIS
     Dosage: 30 MG, QD
     Route: 048
  5. LEVAQUIN [Concomitant]
     Dosage: 125 MG, QD FOR 7 DAYS
     Route: 048
  6. BICITRA [Concomitant]
     Indication: RENAL IMPAIRMENT
     Dosage: 20 ML, TID
     Route: 048
  7. ZOLOFT [Concomitant]
     Indication: DEPRESSION
     Dosage: 25 MG, QD
     Route: 048
  8. SODIUM CHLORIDE [Concomitant]
     Dosage: 800 ML, OVER 10 HRS QD
     Route: 042
  9. LORTAB [Concomitant]
     Indication: PAIN
     Dosage: 6 ML, Q6 HRS PRN
  10. SOLIRIS [Suspect]
     Dosage: 300 MG, Q2W
     Route: 042
  11. TOPOTECAN [Concomitant]
     Dosage: UNK
     Dates: end: 20120622
  12. ZOFRAN [Concomitant]
     Indication: NAUSEA
     Dosage: 4 MG, Q 6 HRS PRN
     Route: 048
  13. NORVASC [Concomitant]
     Dosage: 5 MG, BID
     Route: 048
  14. PENICILLIN VK [Concomitant]
     Dosage: 125 MG, BID
     Route: 048
  15. ISRADIPINE [Concomitant]
     Indication: BLOOD PRESSURE
     Dosage: 2.5 MG, FOR BP}110/75
     Route: 048
  16. DIASTAT [Concomitant]
     Indication: CONVULSION
     Dosage: 5 MG WITH SEIZURE
     Route: 054

REACTIONS (7)
  - BLOOD CREATININE INCREASED [None]
  - LYMPHOCYTE COUNT ABNORMAL [None]
  - SINUSITIS [None]
  - NUCLEAR MAGNETIC RESONANCE IMAGING BRAIN ABNORMAL [None]
  - PYREXIA [None]
  - CONVULSION [None]
  - BONE MARROW FAILURE [None]
